FAERS Safety Report 7816227-2 (Version None)
Quarter: 2011Q4

REPORT INFORMATION
  Report Type: 
  Country: None (occurrence: None)
  Receive Date: 20111016
  Receipt Date: 20110921
  Transmission Date: 20120403
  Serious: Yes (Other)
  Sender: FDA-Public Use
  Company Number: PHEH2004US01575

PATIENT
  Sex: Female

DRUGS (8)
  1. TYLENOL-500 [Concomitant]
  2. ESGIC-PLUS [Concomitant]
  3. MIACALCIN [Concomitant]
  4. COZAAR [Concomitant]
  5. VIVELLE-DOT [Suspect]
     Dosage: 0.1 MG, TWICE WEEKLY
     Route: 062
     Dates: start: 20020701, end: 20020901
  6. FT PLUS [Concomitant]
  7. HYZAAR [Concomitant]
  8. CITRACAL [Concomitant]

REACTIONS (8)
  - PELVIC PAIN [None]
  - ABDOMINAL PAIN [None]
  - PAIN [None]
  - DYSPNOEA [None]
  - NASAL CONGESTION [None]
  - APPLICATION SITE SCAR [None]
  - BLOOD PRESSURE INCREASED [None]
  - HEADACHE [None]
